FAERS Safety Report 8373513-8 (Version None)
Quarter: 2012Q2

REPORT INFORMATION
  Report Type: 
  Country: None (occurrence: None)
  Receive Date: 20120521
  Receipt Date: 20120510
  Transmission Date: 20120825
  Serious: Yes (Hospitalization)
  Sender: FDA-Public Use
  Company Number: US-US-EMD SERONO, INC.-7132335

PATIENT
  Sex: Male

DRUGS (1)
  1. REBIF [Suspect]
     Indication: PRODUCT USED FOR UNKNOWN INDICATION
     Route: 058
     Dates: start: 20120110, end: 20120401

REACTIONS (8)
  - JOINT SWELLING [None]
  - INJECTION SITE PAIN [None]
  - JOINT INJURY [None]
  - FALL [None]
  - WHITE BLOOD CELL COUNT INCREASED [None]
  - AGITATION [None]
  - INAPPROPRIATE SCHEDULE OF DRUG ADMINISTRATION [None]
  - INJECTION SITE NODULE [None]
